FAERS Safety Report 10892574 (Version 2)
Quarter: 2015Q2

REPORT INFORMATION
  Report Type: Spontaneous
  Country: US (occurrence: US)
  Receive Date: 20150306
  Receipt Date: 20150514
  Transmission Date: 20150821
  Serious: Yes (Life-Threatening, Hospitalization, Disabling, Other)
  Sender: FDA-Public Use
  Company Number: US-009507513-1502USA011473

PATIENT
  Age: 29 Year
  Sex: Female
  Weight: 65.76 kg

DRUGS (1)
  1. NUVARING [Suspect]
     Active Substance: ETHINYL ESTRADIOL\ETONOGESTREL
     Indication: CONTRACEPTION
     Dosage: UNK
     Route: 067
     Dates: end: 2015

REACTIONS (3)
  - Pulmonary embolism [Recovering/Resolving]
  - Acute respiratory failure [Unknown]
  - Anaemia [Unknown]

NARRATIVE: CASE EVENT DATE: 201412
